FAERS Safety Report 6603877-4 (Version None)
Quarter: 2010Q1

REPORT INFORMATION
  Report Type: 
  Country: None (occurrence: None)
  Receive Date: 20100226
  Receipt Date: 20090226
  Transmission Date: 20100710
  Serious: No
  Sender: FDA-Public Use
  Company Number: A0771211A

PATIENT
  Age: 25 Year
  Sex: Male

DRUGS (4)
  1. LAMICTAL CD [Suspect]
     Indication: BIPOLAR DISORDER
     Route: 048
  2. EXCEDRIN (MIGRAINE) [Suspect]
     Indication: HEADACHE
     Route: 048
     Dates: start: 20081110, end: 20081110
  3. ULTRAM [Suspect]
     Indication: TOOTHACHE
     Dates: start: 20081109
  4. CELEXA [Suspect]
     Indication: DEPRESSION
     Route: 048

REACTIONS (2)
  - HYPERHIDROSIS [None]
  - SOMNOLENCE [None]
